FAERS Safety Report 14979894 (Version 1)
Quarter: 2018Q2

REPORT INFORMATION
  Report Type: Report from Study
  Country: US (occurrence: US)
  Receive Date: 20180606
  Receipt Date: 20180606
  Transmission Date: 20180711
  Serious: Yes (Death, Hospitalization)
  Sender: FDA-Public Use
  Company Number: US-BAYER-2017-004754

PATIENT
  Age: 37 Year
  Sex: Female

DRUGS (18)
  1. BACLOFEN. [Concomitant]
     Active Substance: BACLOFEN
  2. ASPIRIN. [Concomitant]
     Active Substance: ASPIRIN
  3. VESICARE [Concomitant]
     Active Substance: SOLIFENACIN SUCCINATE
  4. BETASERON [Suspect]
     Active Substance: INTERFERON BETA-1B
     Indication: RELAPSING-REMITTING MULTIPLE SCLEROSIS
     Dosage: 1 ML, QOD
     Route: 058
     Dates: start: 19930406, end: 20170501
  5. METFORMIN [Concomitant]
     Active Substance: METFORMIN HYDROCHLORIDE
  6. AMITRIPTYLINE [Concomitant]
     Active Substance: AMITRIPTYLINE
  7. FAMOTIDINE. [Concomitant]
     Active Substance: FAMOTIDINE
  8. CRANBERRY. [Concomitant]
     Active Substance: CRANBERRY
  9. ADVIL [Concomitant]
     Active Substance: IBUPROFEN
  10. AMLODIPINE [Concomitant]
     Active Substance: AMLODIPINE BESYLATE
  11. FISH OIL [Concomitant]
     Active Substance: FISH OIL
  12. VITAMIN D [Concomitant]
     Active Substance: CHOLECALCIFEROL
  13. VITAMIN C [Concomitant]
     Active Substance: ASCORBIC ACID
  14. ROSUVASTATIN. [Concomitant]
     Active Substance: ROSUVASTATIN
  15. NEURONTIN [Concomitant]
     Active Substance: GABAPENTIN
  16. CLONAZEPAM. [Concomitant]
     Active Substance: CLONAZEPAM
  17. DONEPEZIL. [Concomitant]
     Active Substance: DONEPEZIL
  18. PROPRANOLOL [Concomitant]
     Active Substance: PROPRANOLOL HYDROCHLORIDE

REACTIONS (7)
  - Brain stem stroke [Not Recovered/Not Resolved]
  - Cognitive disorder [Not Recovered/Not Resolved]
  - Pyrexia [Not Recovered/Not Resolved]
  - Chills [Not Recovered/Not Resolved]
  - Memory impairment [Not Recovered/Not Resolved]
  - General physical health deterioration [Not Recovered/Not Resolved]
  - Death [Fatal]

NARRATIVE: CASE EVENT DATE: 19930406
